FAERS Safety Report 15250903 (Version 3)
Quarter: 2018Q3

REPORT INFORMATION
  Report Type: Report from Study
  Country: GT (occurrence: GT)
  Receive Date: 20180807
  Receipt Date: 20180822
  Transmission Date: 20181010
  Serious: Yes (Hospitalization, Other)
  Sender: FDA-Public Use
  Company Number: PHHY2017GT122446

PATIENT
  Age: 35 Year
  Sex: Male
  Weight: 80.73 kg

DRUGS (5)
  1. SIRDALUD [Suspect]
     Active Substance: TIZANIDINE
     Indication: PRODUCT USED FOR UNKNOWN INDICATION
     Dosage: 1 DF, QD
     Route: 065
  2. AIRTAL [Concomitant]
     Active Substance: ACECLOFENAC
     Indication: PRODUCT USED FOR UNKNOWN INDICATION
     Dosage: UNK UNK, BID
     Route: 065
  3. SCAPHO [Suspect]
     Active Substance: SECUKINUMAB
     Dosage: 300 MG, UNK
     Route: 065
     Dates: start: 20171121
  4. SCAPHO [Suspect]
     Active Substance: SECUKINUMAB
     Indication: ANKYLOSING SPONDYLITIS
     Dosage: 300 MG, QMO
     Route: 065
     Dates: start: 201708
  5. SCAPHO [Suspect]
     Active Substance: SECUKINUMAB
     Dosage: 300 MG, UNK
     Route: 065

REACTIONS (43)
  - Musculoskeletal stiffness [Unknown]
  - Somnolence [Unknown]
  - Hepatomegaly [Unknown]
  - Arthritis reactive [Unknown]
  - Nausea [Unknown]
  - Creatinine urine increased [Unknown]
  - Haemoglobin urine present [Unknown]
  - Blood creatinine increased [Unknown]
  - Mycoplasma test positive [Unknown]
  - Neutrophil count increased [Unknown]
  - Lymphocyte count decreased [Unknown]
  - Eye pain [Unknown]
  - pH urine decreased [Unknown]
  - Red blood cells urine positive [Unknown]
  - Red blood cell sedimentation rate increased [Unknown]
  - Alopecia [Unknown]
  - Night sweats [Unknown]
  - Discomfort [Unknown]
  - Epstein-Barr virus antibody positive [Unknown]
  - Ankylosing spondylitis [Unknown]
  - Pain [Not Recovered/Not Resolved]
  - Muscle spasms [Unknown]
  - Blood glucose increased [Unknown]
  - Weight decreased [Unknown]
  - Ocular discomfort [Unknown]
  - Malaise [Unknown]
  - Aphthous ulcer [Unknown]
  - Platelet count increased [Recovered/Resolved]
  - Blood urea increased [Unknown]
  - Diarrhoea [Unknown]
  - Pyrexia [Unknown]
  - Depression [Unknown]
  - Protein urine present [Unknown]
  - Protein urine [Unknown]
  - Arthralgia [Unknown]
  - Back pain [Unknown]
  - Abdominal pain [Unknown]
  - Hypokinesia [Unknown]
  - C-reactive protein increased [Unknown]
  - General physical health deterioration [Not Recovered/Not Resolved]
  - Eye irritation [Unknown]
  - Viral infection [Unknown]
  - Gamma-glutamyltransferase increased [Unknown]

NARRATIVE: CASE EVENT DATE: 20180710
